FAERS Safety Report 11656304 (Version 5)
Quarter: 2016Q1

REPORT INFORMATION
  Report Type: Spontaneous
  Country: US (occurrence: US)
  Receive Date: 20151023
  Receipt Date: 20160106
  Transmission Date: 20160525
  Serious: Yes (Death, Other)
  Sender: FDA-Public Use
  Company Number: US-BIOMARINAP-US-2015-107803

PATIENT
  Age: 7 Year
  Sex: Male

DRUGS (4)
  1. KUVAN [Suspect]
     Active Substance: SAPROPTERIN DIHYDROCHLORIDE
     Indication: PHENYLKETONURIA
     Dosage: 200 MG, BID
     Route: 048
     Dates: start: 20101123
  2. TOPAMAX [Concomitant]
     Active Substance: TOPIRAMATE
     Indication: PRODUCT USED FOR UNKNOWN INDICATION
  3. PHENOBARBITAL. [Concomitant]
     Active Substance: PHENOBARBITAL
     Indication: PRODUCT USED FOR UNKNOWN INDICATION
  4. KEPPRA [Concomitant]
     Active Substance: LEVETIRACETAM
     Indication: PRODUCT USED FOR UNKNOWN INDICATION

REACTIONS (2)
  - Death [Fatal]
  - Seizure [Unknown]

NARRATIVE: CASE EVENT DATE: 20151016
